FAERS Safety Report 9131479 (Version 1)
Quarter: 2013Q1

REPORT INFORMATION
  Report Type: Report from Study
  Country: US (occurrence: US)
  Receive Date: 20130301
  Receipt Date: 20130301
  Transmission Date: 20140127
  Serious: No
  Sender: FDA-Public Use
  Company Number: US-MYLANLABS-2012S1006417

PATIENT
  Age: 16 Year
  Sex: Male
  Weight: 100.7 kg

DRUGS (1)
  1. AMNESTEEM CAPSULES [Suspect]
     Dates: start: 20120213, end: 20120319

REACTIONS (2)
  - Blood triglycerides increased [Not Recovered/Not Resolved]
  - Blood cholesterol increased [Not Recovered/Not Resolved]
